FAERS Safety Report 7803375-6 (Version None)
Quarter: 2011Q4

REPORT INFORMATION
  Report Type: 
  Country: None (occurrence: None)
  Receive Date: 20111007
  Receipt Date: 20110923
  Transmission Date: 20120403
  Serious: Yes (Other)
  Sender: FDA-Public Use
  Company Number: US-WATSON-2011-15379

PATIENT
  Sex: Female

DRUGS (2)
  1. ALENDRONATE SODIUM [Suspect]
     Indication: OSTEOPOROSIS
     Dosage: ^AS INSTRUCTED AND IN A FORESEEABLE MANNER^
     Route: 048
  2. FOSAMAX [Suspect]
     Indication: OSTEOPOROSIS
     Dosage: ^AS INSTRUCTED AND IN A FORESEEABLE MANNER^
     Route: 048

REACTIONS (4)
  - BONE DISORDER [None]
  - LOW TURNOVER OSTEOPATHY [None]
  - FEMUR FRACTURE [None]
  - STRESS FRACTURE [None]
